FAERS Safety Report 17902947 (Version 2)
Quarter: 2020Q3

REPORT INFORMATION
  Report Type: Spontaneous
  Country: ES (occurrence: ES)
  Receive Date: 20200617
  Receipt Date: 20200729
  Transmission Date: 20201103
  Serious: Yes (Hospitalization)
  Sender: FDA-Public Use
  Company Number: ES-INTERCEPT-PM2020001263

PATIENT
  Age: 42 Year
  Sex: Female

DRUGS (6)
  1. URSOBILANE [Concomitant]
     Dosage: 500 MG, BID
     Dates: start: 20180315
  2. DELTIUS [Concomitant]
     Active Substance: CHOLECALCIFEROL
     Dosage: 25.000UI/2,5ML 1//MONTH
  3. OCALIVA [Suspect]
     Active Substance: OBETICHOLIC ACID
     Dosage: 10 MG, 2X/WK
     Route: 048
     Dates: start: 20190926
  4. OCALIVA [Suspect]
     Active Substance: OBETICHOLIC ACID
     Indication: PRIMARY BILIARY CHOLANGITIS
     Dosage: 5 MG, QD
     Route: 048
     Dates: start: 20190617
  5. OMEPRAZOL                          /00661201/ [Concomitant]
     Active Substance: OMEPRAZOLE
     Dosage: 20 MG, BID
  6. EULITOP                            /00022701/ [Concomitant]
     Active Substance: ETHINYL ESTRADIOL\LEVONORGESTREL
     Dosage: 30 UNK, QD

REACTIONS (4)
  - Gastrointestinal angiodysplasia [Not Recovered/Not Resolved]
  - Electrocoagulation [Recovered/Resolved]
  - Drug titration error [Unknown]
  - Upper gastrointestinal haemorrhage [Recovered/Resolved]

NARRATIVE: CASE EVENT DATE: 20190926
